FAERS Safety Report 15959179 (Version 1)
Quarter: 2019Q1

REPORT INFORMATION
  Report Type: Other
  Country: DE (occurrence: DE)
  Receive Date: 20190214
  Receipt Date: 20190214
  Transmission Date: 20190417
  Serious: Yes (Congenital Anomaly, Other)
  Sender: FDA-Public Use
  Company Number: DE-LUPIN PHARMACEUTICALS INC.-2019-00659

PATIENT
  Age: 1 Day
  Sex: Male
  Weight: 2.16 kg

DRUGS (7)
  1. PROGESTERON [Concomitant]
     Active Substance: PROGESTERONE
     Indication: PREMATURE LABOUR
     Dosage: 200 MG, QD
     Route: 064
  2. FOLIO FORTE [Concomitant]
     Active Substance: FOLIC ACID\VITAMINS
     Indication: PROPHYLAXIS OF NEURAL TUBE DEFECT
     Dosage: UNK
     Route: 048
     Dates: start: 20170820, end: 20180411
  3. PAROXETINE. [Suspect]
     Active Substance: PAROXETINE
     Dosage: FROM WEEK 29 20-40 MG/D
     Route: 064
  4. TAVOR (LORAZEPAM) [Suspect]
     Active Substance: LORAZEPAM
     Indication: SLEEP DISORDER
     Dosage: 1 MG, PRN
     Route: 064
     Dates: start: 20180219, end: 20180403
  5. L-THYROXIN                         /00068001/ [Concomitant]
     Active Substance: LEVOTHYROXINE
     Indication: HYPOTHYROIDISM
     Dosage: 75 MICROGRAM, QD
     Route: 064
  6. PAROXETINE. [Suspect]
     Active Substance: PAROXETINE
     Indication: OBSESSIVE THOUGHTS
     Dosage: 5-10MG/D UNTIL WEEK 7
     Route: 064
  7. SERTRALINE [Concomitant]
     Active Substance: SERTRALINE HYDROCHLORIDE
     Indication: ANXIETY DISORDER
     Dosage: 50 [MG/D ]/ INITIAL 25MG/D, THE INCREASED TO 50MG/D
     Route: 064
     Dates: start: 20180226, end: 20180311

REACTIONS (5)
  - Foetal exposure during pregnancy [Unknown]
  - Respiratory disorder neonatal [Recovered/Resolved]
  - Congenital umbilical hernia [Recovered/Resolved]
  - Congenital inguinal hernia [Recovered/Resolved]
  - Premature baby [Unknown]

NARRATIVE: CASE EVENT DATE: 20180411
